FAERS Safety Report 10972119 (Version 4)
Quarter: 2015Q3

REPORT INFORMATION
  Report Type: Spontaneous
  Country: AU (occurrence: AU)
  Receive Date: 20150331
  Receipt Date: 20150713
  Transmission Date: 20151125
  Serious: Yes (Other)
  Sender: FDA-Public Use
  Company Number: ALCN2015AU002094

PATIENT
  Sex: Female

DRUGS (4)
  1. CHLORAMPHENICOL W/HYPROMELLOSE [Concomitant]
     Indication: POSTOPERATIVE CARE
     Dosage: 1 DF, PRN
     Route: 047
  2. VOLTAREN COLIRIO [Suspect]
     Active Substance: DICLOFENAC SODIUM
     Dosage: 1 DF, ONCE/SINGLE
     Route: 047
  3. VOLTAREN COLIRIO [Suspect]
     Active Substance: DICLOFENAC SODIUM
     Indication: POSTOPERATIVE CARE
     Dosage: 1 DF, PRN
     Route: 047
  4. MAXIDEX                            /00207701/ [Concomitant]
     Indication: POSTOPERATIVE CARE
     Dosage: 1 DF, PRN
     Route: 047

REACTIONS (4)
  - Toxicity to various agents [Unknown]
  - Corneal oedema [Unknown]
  - Visual impairment [Unknown]
  - Incorrect route of drug administration [Not Recovered/Not Resolved]
